FAERS Safety Report 4767056-8 (Version None)
Quarter: 2005Q3

REPORT INFORMATION
  Report Type: 
  Country: None (occurrence: None)
  Receive Date: 20050908
  Receipt Date: 20050908
  Transmission Date: 20060218
  Serious: Yes (Hospitalization, Disabling)
  Sender: FDA-Public Use
  Company Number: None

PATIENT
  Age: 47 Year
  Sex: Female

DRUGS (2)
  1. LEVAQUIN [Suspect]
     Indication: URINARY TRACT INFECTION
     Dosage: 500 MG P0 QD
     Route: 048
  2. MOTRIN [Suspect]
     Indication: URINARY TRACT INFECTION

REACTIONS (13)
  - ABDOMINAL PAIN [None]
  - ANURIA [None]
  - BLISTER [None]
  - HAEMODIALYSIS [None]
  - NAUSEA [None]
  - NEPHRITIS INTERSTITIAL [None]
  - NO REACTION ON PREVIOUS EXPOSURE TO DRUG [None]
  - PYELONEPHRITIS [None]
  - RASH ERYTHEMATOUS [None]
  - RASH MACULAR [None]
  - SKIN EXFOLIATION [None]
  - URINARY TRACT INFECTION [None]
  - VOMITING [None]
